FAERS Safety Report 25962884 (Version 3)
Quarter: 2025Q4

REPORT INFORMATION
  Report Type: Spontaneous
  Country: US (occurrence: US)
  Receive Date: 20251027
  Receipt Date: 20251107
  Transmission Date: 20260117
  Serious: Yes (Life-Threatening, Hospitalization, Other)
  Sender: NOVARTIS
  Company Number: US-002147023-NVSC2025US163939

PATIENT
  Sex: Female

DRUGS (27)
  1. COSENTYX [Suspect]
     Active Substance: SECUKINUMAB
     Indication: Psoriasis
     Dosage: 300 MG, Q4W
     Route: 065
     Dates: start: 20241108
  2. COSENTYX [Suspect]
     Active Substance: SECUKINUMAB
     Dosage: UNK (THIGH, RIGHT)
     Route: 065
     Dates: start: 202501
  3. COSENTYX [Suspect]
     Active Substance: SECUKINUMAB
     Dosage: 300 MG (300MG/2ML) (UNDER SKIN EVERY 28DAYS)
     Route: 065
     Dates: start: 20251003
  4. TRULICITY [Concomitant]
     Active Substance: DULAGLUTIDE
     Indication: Product used for unknown indication
     Dosage: UNK
     Route: 065
  5. TRULICITY [Concomitant]
     Active Substance: DULAGLUTIDE
     Dosage: 0.5 ML, QW
     Route: 058
  6. INSULIN NOS [Concomitant]
     Active Substance: INSULIN NOS
     Indication: Product used for unknown indication
     Dosage: UNK
     Route: 065
  7. TYLENOL [Concomitant]
     Active Substance: ACETAMINOPHEN
     Indication: Product used for unknown indication
     Dosage: 2 DOSAGE FORM, Q8H
     Route: 048
     Dates: start: 20250116
  8. FOSAMAX [Concomitant]
     Active Substance: ALENDRONATE SODIUM
     Indication: Product used for unknown indication
     Dosage: 1 DOSAGE FORM (EVERY 7 DAYS)
     Route: 048
     Dates: start: 20250522
  9. LIPITOR [Concomitant]
     Active Substance: ATORVASTATIN CALCIUM
     Indication: Product used for unknown indication
     Dosage: 1 DOSAGE FORM (NIGHTLY)
     Route: 048
     Dates: start: 20241122
  10. VITAMIN D3 [Concomitant]
     Active Substance: CHOLECALCIFEROL
     Indication: Product used for unknown indication
     Dosage: 1 DOSAGE FORM, QD (2000 UNITS)
     Route: 048
     Dates: start: 20241203
  11. COLACE [Concomitant]
     Active Substance: DOCUSATE SODIUM
     Indication: Product used for unknown indication
     Dosage: 1 DOSAGE FORM, TIW
     Route: 048
  12. FERROUS SULFATE [Concomitant]
     Active Substance: FERROUS SULFATE
     Indication: Product used for unknown indication
     Dosage: 1 DOSAGE FORM (EVERY OTHER DAY)
     Route: 048
     Dates: start: 20241203
  13. FLONASE [Concomitant]
     Active Substance: FLUTICASONE PROPIONATE
     Indication: Product used for unknown indication
     Dosage: 1 DOSAGE FORM, QD (SPRAY)
     Route: 045
     Dates: start: 20250605
  14. GLUCOTROL [Concomitant]
     Active Substance: GLIPIZIDE
     Indication: Product used for unknown indication
     Dosage: 1 DOSAGE FORM, BID (BEFORE MEALS)
     Route: 048
     Dates: start: 20250501
  15. LANTUS SOLOSTAR [Concomitant]
     Active Substance: INSULIN GLARGINE
     Indication: Product used for unknown indication
     Dosage: UNK (20 UNITS AT BEDTIME AND 27 UNITS EVERY MORNING)
     Route: 058
     Dates: start: 20250822
  16. CLARITIN [Concomitant]
     Active Substance: LORATADINE
     Indication: Product used for unknown indication
     Dosage: 1 DOSAGE FORM, QD
     Route: 048
     Dates: start: 20250605
  17. COZAAR [Concomitant]
     Active Substance: LOSARTAN POTASSIUM
     Indication: Product used for unknown indication
     Dosage: 1 DOSAGE FORM, BID
     Route: 048
     Dates: start: 20241228
  18. MAGNESIUM OXIDE [Concomitant]
     Active Substance: MAGNESIUM OXIDE
     Indication: Product used for unknown indication
     Dosage: 1 DOSAGE FORM, QD
     Route: 048
     Dates: start: 20250203
  19. GLUCOPHAGE [Concomitant]
     Active Substance: METFORMIN HYDROCHLORIDE
     Indication: Product used for unknown indication
     Dosage: 2 DOSAGE FORM, BID (WITH BREAKFAST AND DINNER) (24HR)
     Route: 048
     Dates: start: 20241203
  20. MINERALS\VITAMINS [Concomitant]
     Active Substance: MINERALS\VITAMINS
     Indication: Product used for unknown indication
     Dosage: 1 DOSAGE FORM, QD
     Route: 048
  21. PRILOSEC [Concomitant]
     Active Substance: OMEPRAZOLE MAGNESIUM
     Indication: Product used for unknown indication
     Dosage: 1 DOSAGE FORM, BID (BEFORE MEALS)
     Route: 048
  22. ZOFRAN [Concomitant]
     Active Substance: ONDANSETRON HYDROCHLORIDE
     Indication: Nausea
     Dosage: 1 DOSAGE FORM, PRN
     Route: 048
  23. ZOFRAN [Concomitant]
     Active Substance: ONDANSETRON HYDROCHLORIDE
     Indication: Vomiting
  24. INDERAL [Concomitant]
     Active Substance: PROPRANOLOL HYDROCHLORIDE
     Indication: Product used for unknown indication
     Dosage: 1 DOSAGE FORM, BID
     Route: 048
  25. ULTRAM [Concomitant]
     Active Substance: TRAMADOL HYDROCHLORIDE
     Indication: Product used for unknown indication
     Dosage: 1 DOSAGE FORM, Q12H (AS NEEDED FOR UPTO 28 DAYS)
     Route: 048
     Dates: start: 20251028
  26. KENALOG [Concomitant]
     Active Substance: TRIAMCINOLONE ACETONIDE
     Indication: Product used for unknown indication
     Dosage: UNK, BID
     Route: 065
     Dates: start: 20251015
  27. COUMADIN [Concomitant]
     Active Substance: WARFARIN SODIUM
     Indication: Product used for unknown indication
     Dosage: UNK, QD (TAKE 1 TO 1 AND 1/2 TABLETS BY MOUTH DAILY)
     Route: 048
     Dates: start: 20250325

REACTIONS (9)
  - Near death experience [Unknown]
  - Blindness [Unknown]
  - Hypoacusis [Unknown]
  - Muscle atrophy [Unknown]
  - Amnesia [Unknown]
  - Haemorrhage [Unknown]
  - Device leakage [Unknown]
  - Device delivery system issue [Unknown]
  - Accidental exposure to product [Unknown]
